FAERS Safety Report 6534768-5 (Version None)
Quarter: 2010Q1

REPORT INFORMATION
  Report Type: 
  Country: None (occurrence: None)
  Receive Date: 20100112
  Receipt Date: 20091230
  Transmission Date: 20100710
  Serious: Yes (Death, Life-Threatening, Hospitalization, Other)
  Sender: FDA-Public Use
  Company Number: FR-BRISTOL-MYERS SQUIBB COMPANY-14923288

PATIENT
  Age: 70 Year
  Sex: Male

DRUGS (2)
  1. GLUCOPHAGE [Suspect]
     Route: 048
     Dates: start: 20080701, end: 20080823
  2. APROVEL TABS [Suspect]
     Route: 048
     Dates: start: 20080820, end: 20080823

REACTIONS (8)
  - CEREBROVASCULAR ACCIDENT [None]
  - CONVULSION [None]
  - HAEMODIALYSIS [None]
  - HYPERKALAEMIA [None]
  - LACTIC ACIDOSIS [None]
  - OVERDOSE [None]
  - RENAL ARTERY STENOSIS [None]
  - RENAL FAILURE [None]
